FAERS Safety Report 9264832 (Version 1)
Quarter: 2013Q2

REPORT INFORMATION
  Report Type: Spontaneous
  Country: US (occurrence: None)
  Receive Date: 20130430
  Receipt Date: 20130430
  Transmission Date: 20140414
  Serious: Yes (Life-Threatening, Hospitalization, Disabling, Other)
  Sender: FDA-Public Use
  Company Number: None

PATIENT
  Age: 53 Year
  Sex: Male
  Weight: 74.84 kg

DRUGS (2)
  1. CLONAZEPAM [Suspect]
     Indication: LYMPHOMA
     Dosage: 1 MG  1 BEDTIME
     Dates: start: 2003, end: 2013
  2. BENZODIAZEPINE [Suspect]

REACTIONS (2)
  - Lymphoma [None]
  - Lymphadenopathy [None]
